FAERS Safety Report 21485428 (Version 6)
Quarter: 2023Q1

REPORT INFORMATION
  Report Type: Report from Study
  Country: US (occurrence: None)
  Receive Date: 20221020
  Receipt Date: 20230307
  Transmission Date: 20230418
  Serious: Yes (Death, Other)
  Sender: FDA-Public Use
  Company Number: US-ROCHE-3202471

PATIENT
  Age: 63 Year
  Sex: Female
  Weight: 99.9 kg

DRUGS (4)
  1. ATEZOLIZUMAB [Suspect]
     Active Substance: ATEZOLIZUMAB
     Indication: Small cell lung cancer
     Dosage: ON 15/AUG/2022, LAST DOSE OF ATEZOLIZUMAB ADMINISTERED
     Route: 041
     Dates: start: 20220711
  2. CISPLATIN [Suspect]
     Active Substance: CISPLATIN
     Indication: Small cell lung cancer
     Dosage: ON 15/AUG/2022, LAST DOSE OF CISPLATIN ADMINISTERED
     Route: 042
     Dates: start: 20220711
  3. ETOPOSIDE [Suspect]
     Active Substance: ETOPOSIDE
     Indication: Small cell lung cancer
     Dosage: ON 17/AUG/2022, LAST DOSE OF ETOPOSIDE ADMINISTERED?100 MG/M2 IV ON DAYS1-3
     Route: 042
     Dates: start: 20220711
  4. CARBOPLATIN [Suspect]
     Active Substance: CARBOPLATIN
     Indication: Small cell lung cancer
     Dosage: AUC=5?CARBOPLATIN: AUC=5 IV ON DAY 1 RT: 1.5 G Y FRACTION BID/ TOTAL DOSE=45 G Y IN 30 FRACTIONS OR
     Route: 042
     Dates: start: 20220711

REACTIONS (3)
  - Death [Fatal]
  - Neutrophil count decreased [Recovered/Resolved]
  - Disease progression [Fatal]

NARRATIVE: CASE EVENT DATE: 20220725
